FAERS Safety Report 4442298-X (Version None)
Quarter: 2004Q3

REPORT INFORMATION
  Report Type: 
  Country: None (occurrence: None)
  Receive Date: 20040903
  Receipt Date: 20040715
  Transmission Date: 20050211
  Serious: Yes (Other)
  Sender: FDA-Public Use
  Company Number: 2004UW14705

PATIENT
  Age: 55 Year
  Sex: Female

DRUGS (1)
  1. CRESTOR [Suspect]
     Indication: BLOOD CHOLESTEROL INCREASED
     Dosage: 10 MG PO
     Route: 048
     Dates: start: 20031201, end: 20040604

REACTIONS (4)
  - ABASIA [None]
  - ASTHENIA [None]
  - MUSCULAR WEAKNESS [None]
  - MYALGIA [None]
